FAERS Safety Report 4801136-3 (Version None)
Quarter: 2005Q4

REPORT INFORMATION
  Report Type: 
  Country: None (occurrence: None)
  Receive Date: 20051017
  Receipt Date: 20051007
  Transmission Date: 20060501
  Serious: Yes (Other)
  Sender: FDA-Public Use
  Company Number: PHBS2005ES14852

PATIENT
  Age: 29 Year
  Sex: Female

DRUGS (2)
  1. TEGRETOL [Suspect]
     Indication: CONVULSION
     Dosage: 675 MG/DAY
     Route: 065
  2. DEPAKENE [Concomitant]

REACTIONS (7)
  - ALOPECIA [None]
  - CHROMATURIA [None]
  - CONVULSION [None]
  - HALLUCINATION [None]
  - HEART RATE IRREGULAR [None]
  - HEMIPLEGIA [None]
  - PHARYNGOLARYNGEAL PAIN [None]
